FAERS Safety Report 5005652-3 (Version None)
Quarter: 2006Q2

REPORT INFORMATION
  Report Type: 
  Country: None (occurrence: None)
  Receive Date: 20060517
  Receipt Date: 20060517
  Transmission Date: 20061013
  Serious: Yes (Hospitalization)
  Sender: FDA-Public Use
  Company Number: None

PATIENT
  Age: 84 Year
  Sex: Male

DRUGS (3)
  1. TERAZOSIN HCL [Suspect]
     Indication: BENIGN PROSTATIC HYPERPLASIA
     Dosage: 20MG QHS
     Dates: start: 20000101
  2. COMBIVENT [Concomitant]
  3. ASPIRIN [Concomitant]

REACTIONS (1)
  - ORTHOSTATIC HYPOTENSION [None]
